FAERS Safety Report 25178366 (Version 3)
Quarter: 2025Q3

REPORT INFORMATION
  Report Type: Spontaneous
  Country: EU (occurrence: EU)
  Receive Date: 20250409
  Receipt Date: 20250802
  Transmission Date: 20251020
  Serious: Yes (Other)
  Sender: ALEXION PHARMACEUTICALS
  Company Number: None

PATIENT
  Age: 48 Year
  Sex: Male

DRUGS (4)
  1. ROSUVASTATIN [Suspect]
     Active Substance: ROSUVASTATIN
     Dosage: 20 MILLIGRAM, 1/DAY
     Dates: start: 20250205
  2. AZILSARTAN KAMEDOXOMIL\CHLORTHALIDONE [Suspect]
     Active Substance: AZILSARTAN KAMEDOXOMIL\CHLORTHALIDONE
     Dosage: 52.5 MILLIGRAM, 1/DAY
     Dates: start: 20250205
  3. TRULICITY [Suspect]
     Active Substance: DULAGLUTIDE
  4. Nebilet hct [Concomitant]

REACTIONS (1)
  - Haematochezia [Recovered/Resolved]
